FAERS Safety Report 7098255-0 (Version None)
Quarter: 2010Q4

REPORT INFORMATION
  Report Type: 
  Country: None (occurrence: None)
  Receive Date: 20101112
  Receipt Date: 20101105
  Transmission Date: 20110411
  Serious: Yes (Other)
  Sender: FDA-Public Use
  Company Number: ZA-SANOFI-AVENTIS-2010SA050532

PATIENT
  Age: 45 Year
  Sex: Male

DRUGS (7)
  1. TAXOTERE [Suspect]
     Route: 041
     Dates: start: 20100524, end: 20100524
  2. TAXOTERE [Suspect]
     Route: 041
     Dates: start: 20100730, end: 20100730
  3. PULMISON [Concomitant]
     Dosage: ON DAY 0-2
     Dates: start: 20100524, end: 20100730
  4. MAXOLON [Concomitant]
     Indication: NAUSEA
     Dates: start: 20100524, end: 20100730
  5. ZANTAC [Concomitant]
     Indication: ADVERSE EVENT
     Dates: start: 20100524, end: 20100730
  6. DEXAMETHASONE [Concomitant]
     Indication: NAUSEA
     Route: 042
     Dates: start: 20100524, end: 20100730
  7. DEXAMETHASONE [Concomitant]
     Route: 042
     Dates: start: 20100524, end: 20100730

REACTIONS (1)
  - OPTIC NEURITIS [None]
